FAERS Safety Report 7338748-1 (Version None)
Quarter: 2011Q1

REPORT INFORMATION
  Report Type: 
  Country: None (occurrence: None)
  Receive Date: 20110308
  Receipt Date: 20110304
  Transmission Date: 20110831
  Serious: Yes (Hospitalization)
  Sender: FDA-Public Use
  Company Number: D0070511A

PATIENT
  Sex: Male
  Weight: 75 kg

DRUGS (5)
  1. SPIRONOLACTONE [Concomitant]
     Route: 065
  2. DOUBLE-BLIND STUDY DRUG [Suspect]
     Route: 048
     Dates: start: 20100310
  3. HYDROCHLOROTHIAZIDE [Concomitant]
     Route: 065
  4. CEFUROXIME [Suspect]
     Indication: LUNG INFECTION
     Route: 065
  5. ALPRAZOLAM [Concomitant]
     Route: 065

REACTIONS (10)
  - CAMPYLOBACTER GASTROENTERITIS [None]
  - PYREXIA [None]
  - GASTROENTERITIS ADENOVIRUS [None]
  - WEIGHT DECREASED [None]
  - DIARRHOEA [None]
  - BLOOD POTASSIUM DECREASED [None]
  - GASTROENTERITIS ROTAVIRUS [None]
  - PNEUMONIA [None]
  - ELECTROLYTE IMBALANCE [None]
  - HYPOVOLAEMIA [None]
